FAERS Safety Report 18542315 (Version 1)
Quarter: 2020Q4

REPORT INFORMATION
  Report Type: Spontaneous
  Country: US (occurrence: US)
  Receive Date: 20201124
  Receipt Date: 20201124
  Transmission Date: 20210114
  Serious: Yes (Other)
  Sender: FDA-Public Use
  Company Number: US-AMERICAN REGENT INC-2020002505

PATIENT
  Age: 18 Year
  Sex: Female

DRUGS (1)
  1. TESTOSTERONE CYPIONATE INJECTION (0517-1830-01) [Suspect]
     Active Substance: TESTOSTERONE CYPIONATE
     Indication: GENDER DYSPHORIA
     Dosage: 200 MILLIGRAM EVERY 2 WEEKS
     Route: 030

REACTIONS (4)
  - Cervix disorder [Recovered/Resolved]
  - Product use in unapproved indication [Unknown]
  - Metaplasia [Recovered/Resolved]
  - Product use issue [Unknown]
